FAERS Safety Report 7005668-1 (Version None)
Quarter: 2010Q3

REPORT INFORMATION
  Report Type: 
  Country: None (occurrence: None)
  Receive Date: 20100921
  Receipt Date: 20100913
  Transmission Date: 20110219
  Serious: Yes (Hospitalization)
  Sender: FDA-Public Use
  Company Number: B0674190A

PATIENT
  Sex: Female

DRUGS (10)
  1. VALTREX [Suspect]
     Indication: HERPES ZOSTER
     Dosage: 500MG PER DAY
     Route: 048
     Dates: start: 20100901, end: 20100906
  2. DEPAS [Concomitant]
     Route: 048
  3. SENNOSIDE [Concomitant]
     Route: 048
  4. POLARAMINE [Concomitant]
     Route: 065
  5. METHYCOBAL [Concomitant]
     Route: 065
  6. ASPIRIN [Concomitant]
     Route: 048
  7. AMLODIPINE BESYLATE [Concomitant]
     Route: 048
  8. ALOSITOL [Concomitant]
     Route: 048
  9. ONEALFA [Concomitant]
     Route: 048
  10. FOSRENOL [Concomitant]
     Route: 048

REACTIONS (5)
  - ASTHENIA [None]
  - DIARRHOEA [None]
  - ENCEPHALOPATHY [None]
  - NAUSEA [None]
  - SPEECH DISORDER [None]
